FAERS Safety Report 6629325-6 (Version None)
Quarter: 2010Q1

REPORT INFORMATION
  Report Type: 
  Country: None (occurrence: None)
  Receive Date: 20100311
  Receipt Date: 20090803
  Transmission Date: 20100710
  Serious: No
  Sender: FDA-Public Use
  Company Number: US-BIOGENIDEC-2009BI024420

PATIENT
  Age: 45 Year
  Sex: Female

DRUGS (4)
  1. AVONEX [Suspect]
     Indication: MULTIPLE SCLEROSIS
     Route: 030
     Dates: start: 19980701, end: 20070101
  2. AVONEX [Suspect]
     Route: 030
     Dates: start: 20070101, end: 20070101
  3. AVONEX [Suspect]
     Route: 030
     Dates: start: 20070101, end: 20070718
  4. AVONEX [Suspect]
     Route: 030
     Dates: start: 20080101

REACTIONS (2)
  - HEADACHE [None]
  - LOSS OF CONTROL OF LEGS [None]
